FAERS Safety Report 11887325 (Version 4)
Quarter: 2017Q2

REPORT INFORMATION
  Report Type: Spontaneous
  Country: CA (occurrence: CA)
  Receive Date: 20160104
  Receipt Date: 20170526
  Transmission Date: 20170829
  Serious: Yes (Other)
  Sender: FDA-Public Use
  Company Number: CA-BIOMARINAP-CA-2015-108419

PATIENT
  Sex: Male
  Weight: 26.5 kg

DRUGS (3)
  1. VIMIZIM [Suspect]
     Active Substance: ELOSULFASE ALFA
     Indication: MUCOPOLYSACCHARIDOSIS IV
     Dosage: 2 MG/KG, QW
     Route: 042
     Dates: start: 20141027
  2. IBUPROFEN. [Concomitant]
     Active Substance: IBUPROFEN
     Indication: PREMEDICATION
     Dosage: 250 MG, SINGLE
     Route: 048
  3. CLARITIN [Concomitant]
     Active Substance: LORATADINE
     Indication: PREMEDICATION
     Dosage: 10 MG, SINGLE
     Route: 048

REACTIONS (10)
  - Tricuspid valve incompetence [Unknown]
  - Aortic stenosis [Unknown]
  - Visual acuity reduced [Unknown]
  - Mitral valve incompetence [Unknown]
  - Pulmonary valve incompetence [Unknown]
  - Spinal column stenosis [Unknown]
  - Lens disorder [Unknown]
  - Spinal cord compression [Unknown]
  - Aortic valve incompetence [Unknown]
  - Corneal opacity [Unknown]
